FAERS Safety Report 26006018 (Version 1)
Quarter: 2025Q4

REPORT INFORMATION
  Report Type: Spontaneous
  Country: US (occurrence: US)
  Receive Date: 20251106
  Receipt Date: 20251106
  Transmission Date: 20260117
  Serious: Yes (Death, Hospitalization)
  Sender: AMGEN
  Company Number: US-AMGEN-USASP2025214589

PATIENT
  Age: 28 Year
  Sex: Male

DRUGS (6)
  1. PREDNISONE [Suspect]
     Active Substance: PREDNISONE
     Indication: Eosinophilia
     Dosage: UNK (HIGH DOSE)
     Route: 065
  2. PREDNISONE [Suspect]
     Active Substance: PREDNISONE
     Indication: Neoplasm
  3. HYDROXYUREA [Concomitant]
     Active Substance: HYDROXYUREA
     Indication: Eosinophilia
  4. HYDROXYUREA [Concomitant]
     Active Substance: HYDROXYUREA
     Indication: Neoplasm
  5. IMATINIB MESYLATE [Concomitant]
     Active Substance: IMATINIB MESYLATE
     Indication: Eosinophilia
     Dosage: 400 MILLIGRAM, QD
     Route: 048
  6. IMATINIB MESYLATE [Concomitant]
     Active Substance: IMATINIB MESYLATE
     Indication: Neoplasm

REACTIONS (5)
  - Cardiac valve disease [Fatal]
  - Cardiac failure [Fatal]
  - Pneumonia [Unknown]
  - Congestive hepatopathy [Unknown]
  - Drug ineffective [Unknown]
